FAERS Safety Report 6444223-9 (Version None)
Quarter: 2009Q4

REPORT INFORMATION
  Report Type: 
  Country: None (occurrence: None)
  Receive Date: 20091118
  Receipt Date: 20091109
  Transmission Date: 20100525
  Serious: Yes (Other)
  Sender: FDA-Public Use
  Company Number: US-ROCHE-663965

PATIENT
  Age: 44 Year
  Sex: Female
  Weight: 105.7 kg

DRUGS (5)
  1. PEGASYS [Suspect]
     Indication: HEPATITIS C
     Route: 058
     Dates: start: 20080521, end: 20090423
  2. RIBAVIRIN [Suspect]
     Indication: HEPATITIS C
     Route: 048
     Dates: start: 20080521, end: 20090423
  3. CITALOPRAM HYDROBROMIDE [Concomitant]
     Indication: DEPRESSION
     Dosage: DOSE: 20, DAILY
     Route: 048
  4. IBUPROFEN [Concomitant]
     Indication: PAIN
     Dosage: DOSE: 600; AS NEEDED
     Route: 048
  5. ADVAIR DISKUS 100/50 [Concomitant]
     Indication: ASTHMA
     Dosage: DOSE: 250/50
     Route: 048

REACTIONS (4)
  - BLINDNESS [None]
  - CARPAL TUNNEL SYNDROME [None]
  - EYE PAIN [None]
  - SCLERITIS [None]
